FAERS Safety Report 23772711 (Version 1)
Quarter: 2024Q2

REPORT INFORMATION
  Report Type: Spontaneous
  Country: US (occurrence: None)
  Receive Date: 20240422
  Receipt Date: 20240422
  Transmission Date: 20240715
  Serious: No
  Sender: FDA-Public Use
  Company Number: None

PATIENT
  Age: 27 Year
  Sex: Female
  Weight: 65.25 kg

DRUGS (8)
  1. EMGALITY [Suspect]
     Active Substance: GALCANEZUMAB-GNLM
     Indication: Migraine
     Dosage: OTHER FREQUENCY : ONCE EVERY 28 DAYS;?
     Route: 058
     Dates: start: 20231214, end: 20240307
  2. VYEPTI [Concomitant]
     Active Substance: EPTINEZUMAB-JJMR
  3. ADDERALL [Concomitant]
     Active Substance: AMPHETAMINE ASPARTATE\AMPHETAMINE SULFATE\DEXTROAMPHETAMINE SACCHARATE\DEXTROAMPHETAMINE SULFATE
  4. TEMAZEPAM [Concomitant]
     Active Substance: TEMAZEPAM
  5. CLARITIN [Concomitant]
     Active Substance: LORATADINE
  6. women^s one a day mutivitamin gummy [Concomitant]
  7. oily fiber gummies [Concomitant]
  8. quick acting laxatives [Concomitant]

REACTIONS (2)
  - Constipation [None]
  - Therapy interrupted [None]

NARRATIVE: CASE EVENT DATE: 20231220
